FAERS Safety Report 24723133 (Version 1)
Quarter: 2024Q4

REPORT INFORMATION
  Report Type: Spontaneous
  Country: US (occurrence: None)
  Receive Date: 20241211
  Receipt Date: 20241211
  Transmission Date: 20250115
  Serious: Yes (Hospitalization, Other)
  Sender: Public
  Company Number: None

PATIENT
  Age: 53 Year
  Sex: Female

DRUGS (2)
  1. SEMAGLUTIDE [Suspect]
     Active Substance: SEMAGLUTIDE
     Dosage: OTHER FREQUENCY : WEEKLY;?
     Dates: start: 20240718, end: 20240829
  2. SEMAGLUTIDE [Concomitant]
     Active Substance: SEMAGLUTIDE
     Dates: start: 20240718, end: 20240829

REACTIONS (6)
  - Cholecystitis acute [None]
  - Haemobilia [None]
  - Cholelithiasis [None]
  - Liver injury [None]
  - Cholecystectomy [None]
  - Sphincter of Oddi dysfunction [None]

NARRATIVE: CASE EVENT DATE: 20240829
